FAERS Safety Report 19393169 (Version 1)
Quarter: 2021Q2

REPORT INFORMATION
  Report Type: Spontaneous
  Country: US (occurrence: US)
  Receive Date: 20210609
  Receipt Date: 20210609
  Transmission Date: 20210717
  Serious: Yes (Death, Other)
  Sender: FDA-Public Use
  Company Number: US-SA-2021SA190247

PATIENT
  Age: 80 Year
  Sex: Male

DRUGS (1)
  1. ZANTAC [Suspect]
     Active Substance: RANITIDINE HYDROCHLORIDE
     Indication: GASTROOESOPHAGEAL REFLUX DISEASE
     Dosage: UNK, QD
     Dates: start: 201401, end: 202001

REACTIONS (4)
  - Renal cancer [Fatal]
  - Lung neoplasm malignant [Fatal]
  - Bone cancer [Fatal]
  - Bladder cancer [Fatal]

NARRATIVE: CASE EVENT DATE: 20200101
